FAERS Safety Report 15269197 (Version 1)
Quarter: 2018Q3

REPORT INFORMATION
  Report Type: Spontaneous
  Country: US (occurrence: US)
  Receive Date: 20180726
  Receipt Date: 20180726
  Transmission Date: 20181010
  Serious: No
  Sender: FDA-Public Use
  Company Number: None

PATIENT
  Age: 55 Year
  Sex: Male

DRUGS (1)
  1. AFINITOR [Suspect]
     Active Substance: EVEROLIMUS
     Route: 048

REACTIONS (5)
  - Stomatitis [None]
  - Rash [None]
  - Lacrimation increased [None]
  - Dry skin [None]
  - Oropharyngeal pain [None]

NARRATIVE: CASE EVENT DATE: 20180726
